FAERS Safety Report 18021973 (Version 1)
Quarter: 2020Q3

REPORT INFORMATION
  Report Type: Spontaneous
  Country: AU (occurrence: AU)
  Receive Date: 20200715
  Receipt Date: 20200715
  Transmission Date: 20201103
  Serious: Yes (Hospitalization, Other)
  Sender: FDA-Public Use
  Company Number: AU-DRREDDYS-AUS/AUS/20/0124828

PATIENT
  Sex: Female

DRUGS (4)
  1. SOTALOL. [Concomitant]
     Active Substance: SOTALOL
     Indication: HEART RATE IRREGULAR
  2. METOPROLOL. [Concomitant]
     Active Substance: METOPROLOL
     Indication: BLOOD PRESSURE MEASUREMENT
  3. ONDANSETRON?DRLA 4MG [Suspect]
     Active Substance: ONDANSETRON
     Indication: NAUSEA
     Dates: start: 20200630
  4. DIGOXIN. [Concomitant]
     Active Substance: DIGOXIN
     Indication: HEART RATE IRREGULAR

REACTIONS (7)
  - Condition aggravated [Unknown]
  - Chest discomfort [Unknown]
  - Overdose [Unknown]
  - Diarrhoea [Unknown]
  - Cardiac fibrillation [Unknown]
  - Dyspepsia [Unknown]
  - Arrhythmia [Not Recovered/Not Resolved]
